FAERS Safety Report 9963110 (Version 2)
Quarter: 2014Q1

REPORT INFORMATION
  Report Type: Spontaneous
  Country: US (occurrence: US)
  Receive Date: 20140305
  Receipt Date: 20140310
  Transmission Date: 20141002
  Serious: Yes (Other)
  Sender: FDA-Public Use
  Company Number: US-BAXTER-2014BAX010491

PATIENT
  Sex: Female

DRUGS (2)
  1. DIANEAL LOW CALCIUM [Suspect]
     Indication: PERITONEAL DIALYSIS
     Route: 033
  2. FORTAZ [Suspect]
     Indication: PERITONITIS
     Route: 033
     Dates: start: 20140224

REACTIONS (2)
  - Peritonitis bacterial [Recovering/Resolving]
  - Peritoneal dialysis complication [Recovered/Resolved]
